FAERS Safety Report 8887191 (Version 1)
Quarter: 2012Q4

REPORT INFORMATION
  Report Type: 
  Country: CA (occurrence: CA)
  Receive Date: 20121105
  Receipt Date: 20121105
  Transmission Date: 20130627
  Serious: Yes (Other)
  Sender: FDA-Public Use
  Company Number: PHHY2012CA100886

PATIENT

DRUGS (1)
  1. ACLASTA [Suspect]
     Indication: OSTEOPOROSIS
     Dosage: 5 mg, UNK
     Dates: start: 201110

REACTIONS (3)
  - Lung neoplasm malignant [Unknown]
  - Pneumonia [Unknown]
  - Gastrointestinal viral infection [Unknown]
